FAERS Safety Report 4786543-X (Version None)
Quarter: 2005Q3

REPORT INFORMATION
  Report Type: 
  Country: None (occurrence: None)
  Receive Date: 20050927
  Receipt Date: 20050701
  Transmission Date: 20060218
  Serious: No
  Sender: FDA-Public Use
  Company Number: USA0507102004

PATIENT
  Age: 53 Year
  Sex: Female

DRUGS (2)
  1. STRATTERA [Suspect]
     Dosage: 80 MG
     Dates: start: 20050606
  2. ZOLOFT [Concomitant]

REACTIONS (2)
  - AGITATION [None]
  - OCULAR HYPERAEMIA [None]
